FAERS Safety Report 4681100-8 (Version None)
Quarter: 2005Q2

REPORT INFORMATION
  Report Type: 
  Country: None (occurrence: None)
  Receive Date: 20050603
  Receipt Date: 20050502
  Transmission Date: 20051028
  Serious: Yes (Disabling)
  Sender: FDA-Public Use
  Company Number: US-MERCK-0505USA00341

PATIENT
  Age: 69 Year
  Sex: Male

DRUGS (4)
  1. FOSAMAX [Suspect]
     Indication: OSTEOPOROSIS
     Route: 048
     Dates: start: 19990101
  2. ASACOL [Concomitant]
     Route: 065
  3. INDERAL [Concomitant]
     Route: 065
  4. XANTHOPHYLL [Concomitant]
     Route: 065

REACTIONS (3)
  - MACULAR DEGENERATION [None]
  - RETINAL VEIN THROMBOSIS [None]
  - VISION BLURRED [None]
